FAERS Safety Report 11068550 (Version 2)
Quarter: 2015Q2

REPORT INFORMATION
  Report Type: Spontaneous
  Country: DK (occurrence: IT)
  Receive Date: 20150427
  Receipt Date: 20150522
  Transmission Date: 20150821
  Serious: Yes (Other)
  Sender: FDA-Public Use
  Company Number: IT-FRI-1000076128

PATIENT
  Age: 65 Year
  Sex: Male

DRUGS (13)
  1. FORPROST [Concomitant]
     Indication: PROSTATIC DISORDER
     Route: 048
  2. LAROXYL [Concomitant]
     Active Substance: AMITRIPTYLINE
     Indication: IRRITABLE BOWEL SYNDROME
     Route: 065
     Dates: start: 201501, end: 201501
  3. TRIATEC HCT [Concomitant]
     Active Substance: HYDROCHLOROTHIAZIDE\RAMIPRIL
     Indication: PRODUCT USED FOR UNKNOWN INDICATION
     Dosage: 15 MG
     Route: 048
     Dates: start: 1997
  4. MICROSER [Concomitant]
     Active Substance: BETAHISTINE HYDROCHLORIDE
     Indication: TINNITUS
     Route: 048
     Dates: end: 20150225
  5. LAROXYL [Concomitant]
     Active Substance: AMITRIPTYLINE
     Indication: TINNITUS
  6. GINKGO BILOBA SIROUP [Concomitant]
     Indication: SUPPLEMENTATION THERAPY
     Route: 048
  7. CITALOPRAM [Suspect]
     Active Substance: CITALOPRAM HYDROBROMIDE
     Indication: IRRITABLE BOWEL SYNDROME
     Dosage: 14 MG
     Route: 048
     Dates: start: 20150207, end: 20150417
  8. CORTISONE SPRAY [Concomitant]
     Indication: NASAL INFLAMMATION
     Route: 045
     Dates: start: 201412, end: 201412
  9. SAFLUTAN [Concomitant]
     Active Substance: TAFLUPROST
     Indication: PRODUCT USED FOR UNKNOWN INDICATION
     Route: 047
  10. CITALOPRAM [Suspect]
     Active Substance: CITALOPRAM HYDROBROMIDE
     Indication: TINNITUS
     Route: 048
     Dates: start: 20150418
  11. SEQUACOR [Concomitant]
     Active Substance: BISOPROLOL
     Indication: PRODUCT USED FOR UNKNOWN INDICATION
     Dosage: 1.25 MG
     Route: 048
  12. ESAPENT [Concomitant]
     Indication: BLOOD TRIGLYCERIDES
     Route: 048
  13. CRESTOR [Concomitant]
     Active Substance: ROSUVASTATIN CALCIUM
     Indication: BLOOD CHOLESTEROL
     Route: 048

REACTIONS (2)
  - Ocular hypertension [Recovering/Resolving]
  - Off label use [Not Recovered/Not Resolved]

NARRATIVE: CASE EVENT DATE: 20150207
